FAERS Safety Report 8037089-7 (Version None)
Quarter: 2012Q1

REPORT INFORMATION
  Report Type: 
  Country: None (occurrence: None)
  Receive Date: 20120111
  Receipt Date: 20120109
  Transmission Date: 20120608
  Serious: Yes (Other)
  Sender: FDA-Public Use
  Company Number: US-GLAXOSMITHKLINE-A0960606A

PATIENT
  Age: 82 Year
  Sex: Female

DRUGS (5)
  1. ADVAIR DISKUS 100/50 [Suspect]
     Indication: ASTHMA
     Dosage: 1PUFF TWICE PER DAY
     Route: 055
     Dates: start: 20060101, end: 20120109
  2. METOPROLOL SUCCINATE [Concomitant]
  3. LASIX [Concomitant]
  4. NIACIN [Concomitant]
  5. ASPIRIN [Concomitant]

REACTIONS (3)
  - ASTHMA [None]
  - DYSPNOEA [None]
  - DRUG ADMINISTRATION ERROR [None]
